FAERS Safety Report 4694089-2 (Version None)
Quarter: 2005Q2

REPORT INFORMATION
  Report Type: 
  Country: None (occurrence: None)
  Receive Date: 20050617
  Receipt Date: 20050613
  Transmission Date: 20051028
  Serious: Yes (Other)
  Sender: FDA-Public Use
  Company Number: 005021

PATIENT
  Age: 57 Year
  Sex: Female

DRUGS (5)
  1. MEDROXYPROGESTERONE ACETATE [Suspect]
     Dates: start: 19940502, end: 20020901
  2. CENESTIN [Suspect]
     Dates: start: 19940502, end: 19980101
  3. PREMARIN [Suspect]
     Dates: start: 19980101, end: 20020901
  4. PROVERA [Suspect]
     Dates: start: 19940502, end: 20020901
  5. MEDROXYPROGESTERONE ACETATE [Suspect]

REACTIONS (1)
  - BREAST CANCER FEMALE [None]
